FAERS Safety Report 25997765 (Version 2)
Quarter: 2025Q4

REPORT INFORMATION
  Report Type: Spontaneous
  Country: EU (occurrence: EU)
  Receive Date: 20251105
  Receipt Date: 20251120
  Transmission Date: 20260118
  Serious: Yes (Other)
  Sender: PHARMOBEDIENT CONSULTING, LLC
  Company Number: EU-Pharmobedient-000405

PATIENT
  Age: 18 Year
  Sex: Female

DRUGS (1)
  1. LITHIUM CARBONATE [Suspect]
     Active Substance: LITHIUM CARBONATE
     Indication: Bipolar disorder
     Dosage: LONG-TERM THERAPY

REACTIONS (1)
  - Scleroderma [Unknown]
